FAERS Safety Report 6030727-X (Version None)
Quarter: 2008Q4

REPORT INFORMATION
  Report Type: 
  Country: None (occurrence: None)
  Receive Date: 20081222
  Receipt Date: 20081007
  Transmission Date: 20090506
  Serious: No
  Sender: FDA-Public Use
  Company Number: US-WYE-H06288508

PATIENT
  Age: 66 Year
  Sex: Female
  Weight: 64.92 kg

DRUGS (1)
  1. PRISTIQ [Suspect]
     Indication: ANXIETY
     Dosage: 50 MG 1X PER 1 DAY, ORAL
     Route: 048
     Dates: start: 20081006, end: 20081006

REACTIONS (2)
  - HEADACHE [None]
  - INSOMNIA [None]
